FAERS Safety Report 10064941 (Version 1)
Quarter: 2014Q1

REPORT INFORMATION
  Report Type: Spontaneous
  Country: US (occurrence: None)
  Receive Date: 20140328
  Receipt Date: 20140328
  Transmission Date: 20141002
  Serious: No
  Sender: FDA-Public Use
  Company Number: 1000052605

PATIENT
  Age: 85 Year
  Sex: Male

DRUGS (2)
  1. LINZESS (LINACLOTIDE) (145 MICROGRAM, CAPSULES) [Suspect]
     Indication: CONSTIPATION
     Route: 048
     Dates: start: 20131228
  2. MUCINEX (GUALFENESIN) [Suspect]
     Indication: NASOPHARYNGITIS
     Dates: start: 20131229

REACTIONS (3)
  - Diarrhoea [None]
  - Flatulence [None]
  - Vision blurred [None]
